FAERS Safety Report 4758982-4 (Version None)
Quarter: 2005Q3

REPORT INFORMATION
  Report Type: 
  Country: None (occurrence: None)
  Receive Date: 20050901
  Receipt Date: 20050610
  Transmission Date: 20060218
  Serious: Yes (Other)
  Sender: FDA-Public Use
  Company Number: PHNR2005AU00986

PATIENT
  Age: 33 Year
  Sex: Female

DRUGS (1)
  1. SYNTOCINON [Suspect]
     Indication: LABOUR INDUCTION
     Dosage: 10 IU (12 HOURS INFUSION)
     Dates: start: 20050609, end: 20050609

REACTIONS (3)
  - CAESAREAN SECTION [None]
  - DRUG EXPOSURE DURING PREGNANCY [None]
  - DRUG INEFFECTIVE [None]
